FAERS Safety Report 4725192-6 (Version None)
Quarter: 2005Q3

REPORT INFORMATION
  Report Type: 
  Country: None (occurrence: None)
  Receive Date: 20050725
  Receipt Date: 20050718
  Transmission Date: 20060218
  Serious: Yes (Life-Threatening)
  Sender: FDA-Public Use
  Company Number: 05USA0144

PATIENT
  Age: 50 Year
  Sex: Male

DRUGS (2)
  1. GLIADEL [Suspect]
     Indication: ASTROCYTOMA
     Dosage: 7.7MG/WADER; 8 WAFERS
     Dates: start: 20050325, end: 20050329
  2. AVITENE (COLLAGEN) [Concomitant]

REACTIONS (5)
  - ARTERIAL HAEMORRHAGE [None]
  - CEREBRAL HAEMORRHAGE [None]
  - CEREBRAL THROMBOSIS [None]
  - OPERATIVE HAEMORRHAGE [None]
  - POST PROCEDURAL COMPLICATION [None]
